FAERS Safety Report 8583856 (Version 4)
Quarter: 2013Q3

REPORT INFORMATION
  Report Type: Spontaneous
  Country: US (occurrence: None)
  Receive Date: 20120511
  Receipt Date: 20130724
  Transmission Date: 20140515
  Serious: Yes (Death, Hospitalization)
  Sender: FDA-Public Use
  Company Number: 2012PROUSA01366

PATIENT
  Age: 59 Year
  Sex: Male
  Weight: 77.1 kg

DRUGS (23)
  1. PROVENGE [Suspect]
     Indication: PROSTATE CANCER METASTATIC
     Dosage: 250 ML, SINGLE, INTRAVENOUS
     Route: 042
     Dates: start: 20120419, end: 20120419
  2. MS CONTIN [Concomitant]
  3. PERCOCET [Concomitant]
  4. AMLODIPINE BESYLATE [Concomitant]
  5. FLUOXETINE (FLUOXETINE) CAPSULE [Concomitant]
  6. LORAZEPAM [Concomitant]
  7. DILTIAZEM [Concomitant]
  8. NITROGLYCERIN [Concomitant]
  9. ESGIC-PLUS (BUTALBITAL, CAFFEINE, PARACETAMOL) [Concomitant]
  10. FENTANYL [Concomitant]
  11. ZOFRAN /00955301/ )ONDANSETRON) [Concomitant]
  12. ESTER E (TOCOPHEROL) CAPSULE [Concomitant]
  13. CASODEX (BICALUTAMIDE) TABLET [Concomitant]
  14. TRAMADOL HCL (TRAMADOL HYDROCHLORIDE) TABLET [Concomitant]
  15. CHLORDIAZEPOXIDE W/CLIDINIUM (CHLORDIAZEPOXIDE, CLIDINIUM) CAPSULE [Concomitant]
  16. BUSPAR (BUSPIRONE HYDROCHLORIDE) TABLET [Concomitant]
  17. MULTIVITAMIN /00097801/ (ASCORBIC ACID, CALCIUM PANTOTHENATE, ERGOCALCIFEROL, NICOTINAMIDE, PYRIDOXI [Concomitant]
  18. CALCIUM MAGNESIUM ZINC (CALCIUM, MAGNESIUM, ZINC) TABLET [Concomitant]
  19. B COMPLEX /02128201/ (BIOTIN, CALCIUM PANTOTHENATE, CHOLINE BITARTRATE, CYANOCOBALAMIN, FOLIC ACID, [Concomitant]
  20. CHOLECALCIFEROL (COLECALCIFEROL) CAPSULE [Concomitant]
  21. TYLENOL /00020001/ (PARACETAMOL) TABLET [Concomitant]
  22. KETOCONAZOLE (KETOCONAZOLE) TABLET [Concomitant]
  23. MICRO-K (POTASSIUM CHLORIDE) CAPSULE [Concomitant]

REACTIONS (17)
  - Prostate cancer [None]
  - Disease progression [None]
  - Lethargy [None]
  - Pyrexia [None]
  - Chills [None]
  - Nausea [None]
  - Vomiting [None]
  - Dizziness [None]
  - Asthenia [None]
  - Headache [None]
  - Arthralgia [None]
  - Musculoskeletal stiffness [None]
  - Hyperhidrosis [None]
  - Somnolence [None]
  - Chest pain [None]
  - Back pain [None]
  - Somnolence [None]
